FAERS Safety Report 9224200 (Version 1)
Quarter: 2013Q2

REPORT INFORMATION
  Report Type: Spontaneous
  Country: NL (occurrence: NL)
  Receive Date: 20130411
  Receipt Date: 20130411
  Transmission Date: 20140414
  Serious: Yes (Other)
  Sender: FDA-Public Use
  Company Number: NL-009507513-1304NLD004304

PATIENT
  Age: 38 Year
  Sex: Female
  Weight: 70 kg

DRUGS (1)
  1. REMERON [Suspect]
     Indication: SLEEP DISORDER
     Dosage: 1 TIMES PER 1 DAYS 15 MG
     Route: 048
     Dates: start: 20130301, end: 20130302

REACTIONS (1)
  - Convulsion [Recovered/Resolved]
